FAERS Safety Report 6899501-6 (Version None)
Quarter: 2010Q3

REPORT INFORMATION
  Report Type: 
  Country: None (occurrence: None)
  Receive Date: 20100803
  Receipt Date: 20100726
  Transmission Date: 20110219
  Serious: No
  Sender: FDA-Public Use
  Company Number: 2009BI008299

PATIENT
  Age: 55 Year
  Sex: Female

DRUGS (1)
  1. TYSABRI [Suspect]
     Indication: MULTIPLE SCLEROSIS
     Route: 042
     Dates: start: 20080606

REACTIONS (8)
  - ANKLE FRACTURE [None]
  - DYSGEUSIA [None]
  - FALL [None]
  - FOOT FRACTURE [None]
  - HYPOAESTHESIA [None]
  - LIGAMENT RUPTURE [None]
  - STRESS [None]
  - WRIST FRACTURE [None]
